FAERS Safety Report 5812013-3 (Version None)
Quarter: 2008Q3

REPORT INFORMATION
  Report Type: 
  Country: None (occurrence: None)
  Receive Date: 20080716
  Receipt Date: 20080704
  Transmission Date: 20090109
  Serious: Yes (Other)
  Sender: FDA-Public Use
  Company Number: PHHY2008JP13683

PATIENT

DRUGS (2)
  1. FEMARA [Suspect]
     Route: 048
  2. HERCEPTIN [Suspect]

REACTIONS (1)
  - LYMPHANGIOMA [None]
